FAERS Safety Report 15716597 (Version 1)
Quarter: 2018Q4

REPORT INFORMATION
  Report Type: Spontaneous
  Country: DE (occurrence: DE)
  Receive Date: 20181213
  Receipt Date: 20181213
  Transmission Date: 20190205
  Serious: Yes (Hospitalization)
  Sender: FDA-Public Use
  Company Number: DE-ROCHE-329521

PATIENT
  Age: 59 Year
  Sex: Male
  Weight: 60 kg

DRUGS (2)
  1. RIAMET [Suspect]
     Active Substance: ARTEMETHER\LUMEFANTRINE
     Indication: MALARIA
     Dosage: PATIENT TOOK A TOTAL OF 24 TABLETS.
     Route: 048
     Dates: start: 20021223, end: 20021226
  2. LARIAM [Suspect]
     Active Substance: MEFLOQUINE HYDROCHLORIDE
     Indication: MALARIA
     Dosage: GIVEN FOR ONE DAY ONLY.
     Route: 048
     Dates: start: 20021223, end: 20021223

REACTIONS (2)
  - Haemolytic anaemia [Recovering/Resolving]
  - Coombs test negative [Unknown]

NARRATIVE: CASE EVENT DATE: 20030108
